FAERS Safety Report 7482940-2 (Version None)
Quarter: 2011Q2

REPORT INFORMATION
  Report Type: 
  Country: None (occurrence: None)
  Receive Date: 20110516
  Receipt Date: 20110512
  Transmission Date: 20111010
  Serious: Yes (Other)
  Sender: FDA-Public Use
  Company Number: DK-PFIZER INC-2010139007

PATIENT
  Age: 63 Year
  Sex: Male
  Weight: 92 kg

DRUGS (5)
  1. ATORVASTATIN CALCIUM [Suspect]
     Indication: HYPERCHOLESTEROLAEMIA
     Dosage: 20 MG, 1X/DAY
     Route: 048
     Dates: start: 20080901, end: 20100928
  2. LESCOL [Suspect]
     Indication: HYPERCHOLESTEROLAEMIA
     Dosage: 80 MILLIGRAM(S)
     Route: 048
     Dates: start: 20080901, end: 20100928
  3. EZETIMIBE [Concomitant]
     Indication: HYPERCHOLESTEROLAEMIA
     Dosage: 10 MILLIGRAM(S)
     Route: 048
     Dates: start: 20081115
  4. ENALAPRIL [Concomitant]
     Indication: HYPERTENSION
     Dosage: 20 MILLIGRAM(S)
     Route: 048
     Dates: start: 20081115, end: 20100301
  5. CLOPIDOGREL [Concomitant]
     Indication: ANTICOAGULANT THERAPY
     Dosage: 75 MILLIGRAM(S)
     Route: 048
     Dates: start: 20081115

REACTIONS (1)
  - POLYNEUROPATHY [None]
